FAERS Safety Report 4368266-4 (Version None)
Quarter: 2004Q2

REPORT INFORMATION
  Report Type: 
  Country: None (occurrence: None)
  Receive Date: 20040527
  Receipt Date: 20040514
  Transmission Date: 20050107
  Serious: Yes (Death, Hospitalization)
  Sender: FDA-Public Use
  Company Number: 104422ISR

PATIENT
  Age: 27 Year
  Sex: Female

DRUGS (3)
  1. CISPLATIN [Suspect]
     Dosage: INTRAVENOUS (NOS)
     Route: 042
     Dates: end: 20031127
  2. FLUOROURACIL [Suspect]
     Dosage: INTRAVENOUS (NOS)
     Route: 042
     Dates: end: 20031127
  3. CALCIUM FOLINATE [Concomitant]

REACTIONS (12)
  - AGRANULOCYTOSIS [None]
  - CYTOLYTIC HEPATITIS [None]
  - DIARRHOEA [None]
  - HEPATOTOXICITY [None]
  - MULTI-ORGAN FAILURE [None]
  - NEPHROPATHY TOXIC [None]
  - PANCYTOPENIA [None]
  - RENAL FAILURE ACUTE [None]
  - SEPSIS [None]
  - STAPHYLOCOCCAL SEPSIS [None]
  - URTICARIA [None]
  - VOMITING [None]
